FAERS Safety Report 8937061 (Version 1)
Quarter: 2012Q4

REPORT INFORMATION
  Report Type: 
  Country: CN (occurrence: CN)
  Receive Date: 20121129
  Receipt Date: 20121129
  Transmission Date: 20130627
  Serious: Yes (Other)
  Sender: FDA-Public Use
  Company Number: PHHY2012CN107725

PATIENT
  Age: 52 Year
  Sex: Female
  Weight: 60 kg

DRUGS (1)
  1. LESCOL [Suspect]
     Indication: ANGINA UNSTABLE
     Dosage: 40 mg, QD
     Route: 048
     Dates: start: 20090324, end: 20090330

REACTIONS (2)
  - Concomitant disease progression [Unknown]
  - Aspartate aminotransferase increased [Recovering/Resolving]
